FAERS Safety Report 10427230 (Version 1)
Quarter: 2014Q3

REPORT INFORMATION
  Report Type: Spontaneous
  Country: TR (occurrence: TR)
  Receive Date: 20140903
  Receipt Date: 20140903
  Transmission Date: 20150326
  Serious: Yes (Hospitalization, Other)
  Sender: FDA-Public Use
  Company Number: TR-WATSON-2014-18803

PATIENT
  Age: 16 Year
  Sex: Male

DRUGS (3)
  1. PYRIDOXINE (UNKNOWN) [Suspect]
     Active Substance: PYRIDOXINE
     Indication: TOXICITY TO VARIOUS AGENTS
     Dosage: 1000 MG, 6 DOSES OF 20ML AT SIX-HOUR INTERVALS
     Route: 030
  2. ISONIAZID. [Suspect]
     Active Substance: ISONIAZID
     Indication: ANTIBIOTIC PROPHYLAXIS
     Dosage: 6000 MG, SINGLE
     Route: 048
  3. ISONIAZID. [Suspect]
     Active Substance: ISONIAZID
     Indication: SUICIDE ATTEMPT

REACTIONS (6)
  - Rhabdomyolysis [Recovered/Resolved]
  - Intentional overdose [Recovered/Resolved]
  - Generalised tonic-clonic seizure [Recovered/Resolved]
  - Vomiting [Recovered/Resolved]
  - Toxicity to various agents [Recovered/Resolved]
  - Suicide attempt [Recovered/Resolved]
